FAERS Safety Report 14944312 (Version 1)
Quarter: 2018Q2

REPORT INFORMATION
  Report Type: Report from Study
  Country: BR (occurrence: BR)
  Receive Date: 20180528
  Receipt Date: 20180528
  Transmission Date: 20180711
  Serious: Yes (Hospitalization)
  Sender: FDA-Public Use
  Company Number: BR-UCBSA-2018022046

PATIENT
  Age: 31 Year
  Sex: Female
  Weight: 84 kg

DRUGS (9)
  1. PREDNISONE. [Concomitant]
     Active Substance: PREDNISONE
     Indication: RHEUMATOID ARTHRITIS
     Dosage: SINCE 5/6 - 3 TABLETS
     Route: 048
  2. GLIFAGE [Concomitant]
     Active Substance: METFORMIN HYDROCHLORIDE
     Indication: DIABETES MELLITUS
     Dosage: - 1 TABLET FROM MAR/APR-2017  UNTIL 3 MONTHS AFTER LABOR
     Route: 048
  3. PARACETAMOL [Concomitant]
     Active Substance: ACETAMINOPHEN
     Indication: RHEUMATOID ARTHRITIS
     Dosage: SINCE MAR/APR-2017 - 2 TABLET/DAY
     Route: 048
     Dates: end: 201801
  4. CERTOLIZUMAB PEGOL [Suspect]
     Active Substance: CERTOLIZUMAB PEGOL
     Indication: RHEUMATOID ARTHRITIS
     Dosage: 200 MG, EV 15 DAYS
     Dates: start: 2016, end: 2017
  5. INSULIN [Concomitant]
     Active Substance: INSULIN NOS
     Indication: DIABETES MELLITUS
     Dosage: UNK
     Dates: end: 201801
  6. PURAN [Concomitant]
     Active Substance: LEVOTHYROXINE SODIUM
     Indication: THYROID DISORDER
     Dosage: SINCE MAR/APR-2017 - 1 TABLET
     Route: 048
     Dates: end: 201801
  7. VITAMIN D [Concomitant]
     Active Substance: CHOLECALCIFEROL
     Indication: PREGNANCY
  8. IRON [Concomitant]
     Active Substance: IRON
     Indication: PREGNANCY
     Dosage: SINCE MAR/APR-2017 - 1 TABLET
     Route: 048
     Dates: end: 201801
  9. VITAMIN D [Concomitant]
     Active Substance: CHOLECALCIFEROL
     Indication: VITAMIN D
     Dosage: SINCE MAR/APR-2017 -1  TABLET
     Route: 048
     Dates: end: 201801

REACTIONS (3)
  - Vitamin D decreased [Recovered/Resolved]
  - Pregnancy [Unknown]
  - High risk pregnancy [Unknown]

NARRATIVE: CASE EVENT DATE: 201703
